FAERS Safety Report 8760077 (Version 1)
Quarter: 2012Q4

REPORT INFORMATION
  Report Type: Spontaneous
  Country: US (occurrence: None)
  Receive Date: 20120829
  Receipt Date: 20120829
  Transmission Date: 20130627
  Serious: Yes (Other)
  Sender: FDA-Public Use
  Company Number: None

PATIENT
  Age: 41 Year
  Sex: Female
  Weight: 68.04 kg

DRUGS (1)
  1. COLGATE TOOTHPASTE [Suspect]

REACTIONS (7)
  - Swollen tongue [None]
  - Aphthous stomatitis [None]
  - Tongue discolouration [None]
  - Tongue blistering [None]
  - Oral herpes [None]
  - Tooth disorder [None]
  - Hypoaesthesia oral [None]
